FAERS Safety Report 9768048 (Version 1)
Quarter: 2013Q4

REPORT INFORMATION
  Report Type: Spontaneous
  Country: FR (occurrence: FR)
  Receive Date: 20131217
  Receipt Date: 20131217
  Transmission Date: 20140711
  Serious: Yes (Hospitalization)
  Sender: FDA-Public Use
  Company Number: FR-PFIZER INC-2013353207

PATIENT
  Age: 86 Year
  Sex: Female
  Weight: 51.7 kg

DRUGS (3)
  1. TAHOR [Suspect]
     Indication: HYPERCHOLESTEROLAEMIA
     Dosage: 10 MG, 1X/DAY
     Route: 048
     Dates: start: 20131010, end: 20131017
  2. INEXIUM [Suspect]
     Indication: IRON DEFICIENCY ANAEMIA
     Dosage: 40 MG, 1X/DAY
     Route: 048
     Dates: start: 20131010, end: 20131017
  3. LOVENOX [Suspect]
     Indication: PULMONARY EMBOLISM
     Dosage: 0.4 ML, 2X/DAY
     Route: 058
     Dates: start: 20131010, end: 20131017

REACTIONS (2)
  - Rash [Recovered/Resolved]
  - Iron deficiency anaemia [Unknown]
